FAERS Safety Report 25959567 (Version 1)
Quarter: 2025Q4

REPORT INFORMATION
  Report Type: Spontaneous
  Country: RU (occurrence: RU)
  Receive Date: 20251026
  Receipt Date: 20251026
  Transmission Date: 20260117
  Serious: Yes (Death, Hospitalization)
  Sender: ROCHE
  Company Number: RU-ROCHE-10000415654

PATIENT
  Age: 36 Year
  Sex: Female

DRUGS (1)
  1. EVRYSDI [Suspect]
     Active Substance: RISDIPLAM
     Indication: Spinal muscular atrophy
     Route: 065

REACTIONS (2)
  - Pneumonia [Fatal]
  - Respiratory failure [Fatal]
